FAERS Safety Report 12762004 (Version 1)
Quarter: 2016Q3

REPORT INFORMATION
  Report Type: Spontaneous
  Country: SE (occurrence: SE)
  Receive Date: 20160920
  Receipt Date: 20160920
  Transmission Date: 20161109
  Serious: Yes (Other)
  Sender: FDA-Public Use
  Company Number: SE-TEVA-691516ACC

PATIENT
  Age: 12 Year
  Sex: Male

DRUGS (1)
  1. MONTELUKAST TEVA 4 MG GRANULES [Suspect]
     Active Substance: MONTELUKAST SODIUM
     Indication: ASTHMA
     Dosage: 5 MILLIGRAM DAILY;
     Route: 048

REACTIONS (1)
  - Abnormal behaviour [Recovered/Resolved]
